FAERS Safety Report 7652623-4 (Version None)
Quarter: 2011Q3

REPORT INFORMATION
  Report Type: 
  Country: None (occurrence: None)
  Receive Date: 20110728
  Receipt Date: 20110720
  Transmission Date: 20111222
  Serious: Yes (Other)
  Sender: FDA-Public Use
  Company Number: DSU-2011-05393

PATIENT
  Age: 28 Year
  Sex: Female
  Weight: 107.5025 kg

DRUGS (1)
  1. AZOR [Suspect]
     Indication: HYPERTENSION
     Dosage: (QD), PER ORAL
     Route: 048
     Dates: start: 20110621, end: 20110623

REACTIONS (3)
  - MOVEMENT DISORDER [None]
  - HYPERSENSITIVITY [None]
  - DYSPHEMIA [None]
